FAERS Safety Report 13019302 (Version 1)
Quarter: 2016Q4

REPORT INFORMATION
  Report Type: Spontaneous
  Country: US (occurrence: US)
  Receive Date: 20161212
  Receipt Date: 20161212
  Transmission Date: 20170207
  Serious: No
  Sender: FDA-Public Use
  Company Number: US-RECKITT BENCKISER HEALTHCARE INT LIMITED-RB-91397-2016

PATIENT
  Age: 2 Year
  Sex: Male

DRUGS (1)
  1. DELSYM [Suspect]
     Active Substance: DEXTROMETHORPHAN
     Indication: COUGH
     Dosage: UNK, NOT MORE THAN 20ML
     Route: 048

REACTIONS (3)
  - Accidental exposure to product by child [Recovered/Resolved]
  - Accidental overdose [Recovered/Resolved]
  - No adverse event [Recovered/Resolved]
